FAERS Safety Report 9357457 (Version 1)
Quarter: 2013Q2

REPORT INFORMATION
  Report Type: Report from Study
  Country: EC (occurrence: EC)
  Receive Date: 20130620
  Receipt Date: 20130620
  Transmission Date: 20140414
  Serious: Yes (Other)
  Sender: FDA-Public Use
  Company Number: PHHY2013EC062495

PATIENT
  Sex: Female

DRUGS (1)
  1. DIOVAN HCT [Suspect]
     Indication: HYPERTENSION
     Dosage: 1 DF, (VALS 160 MG/HCT 25 MG) QD
     Dates: start: 2005

REACTIONS (9)
  - Herpes virus infection [Unknown]
  - Skin lesion [Unknown]
  - Pain [Unknown]
  - Pruritus [Unknown]
  - Burning sensation [Unknown]
  - Asthma [Unknown]
  - Immunodeficiency [Unknown]
  - Feeling jittery [Unknown]
  - Hypersensitivity [Unknown]
